FAERS Safety Report 11446675 (Version 1)
Quarter: 2015Q3

REPORT INFORMATION
  Report Type: Spontaneous
  Country: US (occurrence: US)
  Receive Date: 20150831
  Receipt Date: 20150831
  Transmission Date: 20151125
  Serious: No
  Sender: FDA-Public Use
  Company Number: US-ELI_LILLY_AND_COMPANY-US200810002152

PATIENT
  Age: 62 Year
  Sex: Female

DRUGS (2)
  1. CALTRATE [Concomitant]
     Active Substance: CALCIUM CARBONATE
  2. CYMBALTA [Suspect]
     Active Substance: DULOXETINE HYDROCHLORIDE
     Indication: SCIATICA
     Dosage: 30 MG, DAILY (1/D)
     Dates: start: 20081002

REACTIONS (2)
  - Constipation [Not Recovered/Not Resolved]
  - Haemoptysis [Not Recovered/Not Resolved]

NARRATIVE: CASE EVENT DATE: 20081002
